FAERS Safety Report 26151456 (Version 1)
Quarter: 2025Q4

REPORT INFORMATION
  Report Type: Spontaneous
  Country: CN (occurrence: CN)
  Receive Date: 20251212
  Receipt Date: 20251212
  Transmission Date: 20260118
  Serious: Yes (Other)
  Sender: SANDOZ
  Company Number: CN-SANDOZ-SDZ2025CN093701

PATIENT
  Age: 76 Year
  Sex: Male
  Weight: 48 kg

DRUGS (2)
  1. VORICONAZOLE [Suspect]
     Active Substance: VORICONAZOLE
     Indication: Squamous cell carcinoma
     Dosage: 400 MG, Q12H
     Route: 048
     Dates: start: 20251203, end: 202512
  2. VORICONAZOLE [Suspect]
     Active Substance: VORICONAZOLE
     Indication: Pneumonia fungal

REACTIONS (8)
  - Depressed level of consciousness [Recovering/Resolving]
  - Hallucination, visual [Recovering/Resolving]
  - Nervous system disorder [Unknown]
  - Tremor [Recovering/Resolving]
  - Diplopia [Recovering/Resolving]
  - Insomnia [Recovering/Resolving]
  - Vomiting [Recovered/Resolved]
  - Nausea [Recovered/Resolved]

NARRATIVE: CASE EVENT DATE: 20251201
